FAERS Safety Report 20231678 (Version 2)
Quarter: 2023Q4

REPORT INFORMATION
  Report Type: Spontaneous
  Country: US (occurrence: US)
  Receive Date: 20211227
  Receipt Date: 20231027
  Transmission Date: 20240110
  Serious: No
  Sender: FDA-Public Use
  Company Number: US-AVEO ONCOLOGY-2021-AVEO-US003589

PATIENT

DRUGS (11)
  1. FOTIVDA [Suspect]
     Active Substance: TIVOZANIB HYDROCHLORIDE
     Indication: Renal cell carcinoma
     Dosage: 1.34 MG DAILY FOR 21 DAYS THEN 7 DAYS OFF
     Route: 048
     Dates: start: 20210913
  2. ALLOPURINOL [Concomitant]
     Active Substance: ALLOPURINOL
  3. ATENOLOL [Concomitant]
     Active Substance: ATENOLOL
  4. ATORVASTATIN CALCIUM [Concomitant]
     Active Substance: ATORVASTATIN CALCIUM
  5. BASAGLAR [Concomitant]
     Active Substance: INSULIN GLARGINE
  6. METFORMIN [Concomitant]
     Active Substance: METFORMIN HYDROCHLORIDE
  7. OPDIVO [Concomitant]
     Active Substance: NIVOLUMAB
  8. PREGABALIN [Concomitant]
     Active Substance: PREGABALIN
  9. SYMBICORT [Concomitant]
     Active Substance: BUDESONIDE\FORMOTEROL FUMARATE DIHYDRATE
  10. TAMSULOSIN HYDROCHLORIDE [Concomitant]
     Active Substance: TAMSULOSIN HYDROCHLORIDE
  11. XGEVA [Concomitant]
     Active Substance: DENOSUMAB

REACTIONS (2)
  - Fatigue [Unknown]
  - Aphonia [Unknown]
